FAERS Safety Report 16741759 (Version 2)
Quarter: 2019Q3

REPORT INFORMATION
  Report Type: Report from Study
  Country: US (occurrence: US)
  Receive Date: 20190826
  Receipt Date: 20190913
  Transmission Date: 20191005
  Serious: Yes (Hospitalization, Other)
  Sender: FDA-Public Use
  Company Number: US-AVEXISPRA-CTR-AVXS12019-0012

PATIENT
  Age: 1 Year
  Sex: Male
  Weight: 10.93 kg

DRUGS (11)
  1. MIRALAX [Concomitant]
     Active Substance: POLYETHYLENE GLYCOL 3350
  2. PREDNISONE. [Concomitant]
     Active Substance: PREDNISONE
     Dosage: 4 MILLIMOLE PER KILOGRAM, QD
     Dates: end: 20190812
  3. LEVALBUTEROL                       /01419302/ [Concomitant]
     Dosage: 0.31 MG/3ML
  4. PHYTONADIONE. [Concomitant]
     Active Substance: PHYTONADIONE
     Dosage: 1 MILLIGRAM PER MILLILITRE
     Route: 048
  5. TRIAMCINOLONE [Concomitant]
     Active Substance: TRIAMCINOLONE
     Dosage: 0.5 PERCENT
  6. AVXS-101 [Suspect]
     Active Substance: ONASEMNOGENE ABEPARVOVEC
     Indication: SPINAL MUSCULAR ATROPHY
     Dosage: 63.3 MILLILITER, SINGLE
     Route: 042
     Dates: start: 20190710, end: 20190710
  7. PREDNISOLONE                       /00016204/ [Concomitant]
     Active Substance: PREDNISOLONE
  8. PEDIA LAX GLYCERIN [Concomitant]
     Dosage: 1 SUPPOSITORY
  9. OMEPRAZOLE. [Concomitant]
     Active Substance: OMEPRAZOLE
     Dosage: 2 MILLIGRAM PER MILLILITRE
  10. IPRATROPIUM BROMIDE. [Concomitant]
     Active Substance: IPRATROPIUM BROMIDE
     Dosage: 0.02 PERCENT
  11. URSODIOL. [Concomitant]
     Active Substance: URSODIOL
     Dosage: 20 MILLIGRAM PER MILLILITRE

REACTIONS (1)
  - Transaminases increased [Not Recovered/Not Resolved]

NARRATIVE: CASE EVENT DATE: 20190809
